FAERS Safety Report 10855149 (Version 1)
Quarter: 2015Q1

REPORT INFORMATION
  Report Type: Spontaneous
  Country: IT (occurrence: None)
  Receive Date: 20150218
  Receipt Date: 20150218
  Transmission Date: 20150721
  Serious: Yes (Hospitalization, Other)
  Sender: FDA-Public Use
  Company Number: IT-ZYDUS-006690

PATIENT
  Age: 3 Year

DRUGS (1)
  1. HALOPERIDOL (HALOPERIDOL) (HALOPERIDOL) [Suspect]
     Active Substance: HALOPERIDOL

REACTIONS (4)
  - Poisoning [None]
  - Sedation [None]
  - Dystonia [None]
  - Extrapyramidal disorder [None]
